FAERS Safety Report 4849970-8 (Version None)
Quarter: 2005Q4

REPORT INFORMATION
  Report Type: 
  Country: None (occurrence: None)
  Receive Date: 20051102
  Receipt Date: 20050621
  Transmission Date: 20060501
  Serious: No
  Sender: FDA-Public Use
  Company Number: 200511250BWH

PATIENT
  Age: 83 Year
  Sex: Male

DRUGS (3)
  1. LEVITRA [Suspect]
     Indication: ERECTILE DYSFUNCTION
     Dosage: 20 MG, TOTAL DAILY, ORAL
     Route: 048
     Dates: start: 20050613
  2. TOPROL-XL [Concomitant]
  3. FOSAMAX [Concomitant]

REACTIONS (1)
  - ORGASM ABNORMAL [None]
